FAERS Safety Report 9172301 (Version 1)
Quarter: 2013Q1

REPORT INFORMATION
  Report Type: Spontaneous
  Country: ID (occurrence: ID)
  Receive Date: 20130319
  Receipt Date: 20130319
  Transmission Date: 20140127
  Serious: Yes (Disabling)
  Sender: FDA-Public Use
  Company Number: ID-GE HEALTHCARE MEDICAL DIAGNOSTICS-OMPQ-NO-1303S-0312

PATIENT
  Age: 5 Month
  Sex: Male

DRUGS (3)
  1. OMNIPAQUE [Suspect]
     Indication: ENCEPHALITIS
     Route: 013
     Dates: start: 20130227, end: 20130227
  2. OMNIPAQUE [Suspect]
     Indication: DIAGNOSTIC PROCEDURE
  3. DEXTROSE [Concomitant]

REACTIONS (2)
  - Necrosis [Not Recovered/Not Resolved]
  - Thrombosis [Not Recovered/Not Resolved]
